FAERS Safety Report 6332410-X (Version None)
Quarter: 2009Q3

REPORT INFORMATION
  Report Type: 
  Country: None (occurrence: None)
  Receive Date: 20090828
  Receipt Date: 20090820
  Transmission Date: 20100115
  Serious: Yes (Hospitalization)
  Sender: FDA-Public Use
  Company Number: BE-AVENTIS-200919210GDDC

PATIENT
  Age: 66 Year
  Sex: Male
  Weight: 74 kg

DRUGS (7)
  1. TAXOTERE [Suspect]
     Indication: NON-SMALL CELL LUNG CANCER
     Dosage: DOSE: UNK
     Route: 042
     Dates: start: 20090720, end: 20090720
  2. CODE UNBROKEN [Suspect]
     Indication: NON-SMALL CELL LUNG CANCER
     Dates: start: 20090720
  3. AMLODIPINE [Concomitant]
  4. ATACAND [Concomitant]
  5. ASPIRIN [Concomitant]
  6. LIPITOR [Concomitant]
  7. HYDROCHLOROTHIAZIDE [Concomitant]

REACTIONS (4)
  - CONFUSIONAL STATE [None]
  - DEHYDRATION [None]
  - DIZZINESS [None]
  - HYPONATRAEMIA [None]
